FAERS Safety Report 19081625 (Version 2)
Quarter: 2021Q2

REPORT INFORMATION
  Report Type: Spontaneous
  Country: NL (occurrence: NL)
  Receive Date: 20210331
  Receipt Date: 20210405
  Transmission Date: 20210717
  Serious: Yes (Life-Threatening, Hospitalization)
  Sender: FDA-Public Use
  Company Number: NL-ASTRAZENECA-2021A211972

PATIENT
  Sex: Female
  Weight: 93.1 kg

DRUGS (15)
  1. ATORVASTATINE [Concomitant]
     Active Substance: ATORVASTATIN
     Dosage: KAUWTABLET, 10 MG (MILLIGRAM)
  2. COLECALCIFEROL [Concomitant]
     Active Substance: CHOLECALCIFEROL
     Dosage: CAPSULE, 800 UNITS
  3. PARACETAMOL [Concomitant]
     Active Substance: ACETAMINOPHEN
     Dosage: CAPSULE, 500 MG (MILLIGRAM)
  4. SALBUTAMOL [Concomitant]
     Active Substance: ALBUTEROL
     Dosage: AEROSOL, 100 ??G/DOSIS (MICROGRAM PER DOSIS)
  5. CODEINE [Concomitant]
     Active Substance: CODEINE
     Dosage: TABLET, 20 MG (MILLIGRAM)
  6. CICLESONIDE [Concomitant]
     Active Substance: CICLESONIDE
     Dosage: AEROSOL, 80 ??G/DOSIS (MICROGRAM PER DOSIS)
  7. OXAZEPAM. [Concomitant]
     Active Substance: OXAZEPAM
     Dosage: TABLET, 10 MG (MILLIGRAM)
  8. CARBASALAATCALCIUM [Concomitant]
     Active Substance: CARBASPIRIN CALCIUM
     Dosage: 100 MG ORAAL
  9. MORFINE HYDROCHLORIDE [Concomitant]
     Dosage: 1.0DF AS REQUIRED
  10. DAPAGLIFLOZINE [Suspect]
     Active Substance: DAPAGLIFLOZIN
     Indication: BLOOD GLUCOSE ABNORMAL
     Dosage: 10.0MG UNKNOWN
     Route: 065
     Dates: start: 20200709, end: 20210310
  11. LISINOPRIL. [Concomitant]
     Active Substance: LISINOPRIL
     Dosage: TABLET, 20 MG (MILLIGRAM)
  12. FUROSEMIDE. [Concomitant]
     Active Substance: FUROSEMIDE
  13. MIRABEGRON [Concomitant]
     Active Substance: MIRABEGRON
     Dosage: TABLET WITH REGULATED RELEASE
  14. METFORMINE [Concomitant]
     Active Substance: METFORMIN HYDROCHLORIDE
     Dosage: 2DD 500MG
  15. PREGABALINE [Concomitant]
     Active Substance: PREGABALIN
     Dosage: CAPSULE, 150 MG (MILLIGRAM)

REACTIONS (4)
  - Metabolic acidosis [Recovered/Resolved]
  - Hypotension [Recovered/Resolved]
  - Acute kidney injury [Recovered/Resolved]
  - Hyperkalaemia [Recovered/Resolved]

NARRATIVE: CASE EVENT DATE: 20210310
